FAERS Safety Report 6731219-2 (Version None)
Quarter: 2010Q2

REPORT INFORMATION
  Report Type: 
  Country: None (occurrence: None)
  Receive Date: 20100517
  Receipt Date: 20100517
  Transmission Date: 20101027
  Serious: Yes (Other)
  Sender: FDA-Public Use
  Company Number: None

PATIENT
  Sex: Female
  Weight: 81.6475 kg

DRUGS (3)
  1. CITRACAL [Suspect]
     Indication: MENOPAUSE
     Dosage: 1ST TIME PO
     Route: 048
  2. AMLODIPINE BESYLATE [Suspect]
  3. TRIAMTERENE AND HYDROCHLOROTHIAZIDE [Suspect]

REACTIONS (1)
  - DRUG HYPERSENSITIVITY [None]
